FAERS Safety Report 18685231 (Version 1)
Quarter: 2020Q4

REPORT INFORMATION
  Report Type: Spontaneous
  Country: DE (occurrence: DE)
  Receive Date: 20201230
  Receipt Date: 20201230
  Transmission Date: 20210114
  Serious: Yes (Hospitalization, Other)
  Sender: FDA-Public Use
  Company Number: NVSC2020DE339047

PATIENT
  Age: 74 Year
  Sex: Male

DRUGS (5)
  1. BISOPROLOL [Suspect]
     Active Substance: BISOPROLOL
     Indication: PRODUCT USED FOR UNKNOWN INDICATION
     Dosage: UNK UNK, QD (1-0-0-0)
     Route: 065
  2. TROPICAMID [Suspect]
     Active Substance: TROPICAMIDE
     Indication: PRODUCT USED FOR UNKNOWN INDICATION
     Dosage: UNK (AM 02102020 )
     Route: 065
     Dates: start: 20201002, end: 20201002
  3. ATORVASTATIN [Concomitant]
     Active Substance: ATORVASTATIN
     Indication: PRODUCT USED FOR UNKNOWN INDICATION
     Dosage: UNK, QD (0-0-1-0 )
     Route: 065
  4. RAMIPRIL. [Concomitant]
     Active Substance: RAMIPRIL
     Indication: PRODUCT USED FOR UNKNOWN INDICATION
     Dosage: 5 MG, Q12H (1-0-1-0 )
     Route: 065
  5. OXYBUPROCAINE [Suspect]
     Active Substance: BENOXINATE
     Indication: PRODUCT USED FOR UNKNOWN INDICATION
     Dosage: UNK (AM 02102020 )
     Route: 065
     Dates: start: 20201002, end: 20201002

REACTIONS (6)
  - Syncope [Recovered/Resolved]
  - Bradycardia [Recovered/Resolved]
  - Cold sweat [Recovered/Resolved]
  - Dizziness [Recovered/Resolved]
  - Hypotension [Recovered/Resolved]
  - Malaise [Recovered/Resolved]

NARRATIVE: CASE EVENT DATE: 20201002
